FAERS Safety Report 17433404 (Version 1)
Quarter: 2020Q1

REPORT INFORMATION
  Report Type: Report from Study
  Country: IT (occurrence: IT)
  Receive Date: 20200219
  Receipt Date: 20200219
  Transmission Date: 20200409
  Serious: Yes (Other)
  Sender: FDA-Public Use
  Company Number: IT-TEVA-2020-IT-1187730

PATIENT
  Age: 82 Year
  Sex: Female

DRUGS (11)
  1. FUROSEMIDE. [Concomitant]
     Active Substance: FUROSEMIDE
  2. TICLOPIDINE [Suspect]
     Active Substance: TICLOPIDINE
     Indication: ANTIPLATELET THERAPY
     Dosage: 500 MILLIGRAM
     Route: 048
     Dates: start: 20190101, end: 20190426
  3. SEROQUEL [Concomitant]
     Active Substance: QUETIAPINE FUMARATE
  4. TELMISARTAN. [Concomitant]
     Active Substance: TELMISARTAN
  5. TRAVATAN 40 MICROGRAMS/ML EYE DROPS, SOLUTION [Concomitant]
  6. POTASSION - SALI DI POTASSIO [Concomitant]
  7. DELTACORTENE 25 MG COMPRESSE [Concomitant]
     Active Substance: PREDNISONE
  8. LANSOPRAZOLE. [Concomitant]
     Active Substance: LANSOPRAZOLE
  9. CANRENONE [Concomitant]
     Active Substance: CANRENONE
  10. OXYGEN. [Concomitant]
     Active Substance: OXYGEN
  11. SIMVASTATIN. [Concomitant]
     Active Substance: SIMVASTATIN

REACTIONS (1)
  - Transient ischaemic attack [Recovering/Resolving]

NARRATIVE: CASE EVENT DATE: 20190426
